FAERS Safety Report 6100680-9 (Version None)
Quarter: 2009Q1

REPORT INFORMATION
  Report Type: 
  Country: None (occurrence: None)
  Receive Date: 20090303
  Receipt Date: 20090221
  Transmission Date: 20090719
  Serious: Yes (Other)
  Sender: FDA-Public Use
  Company Number: PHHY2009BR06927

PATIENT
  Age: 81 Year
  Sex: Male

DRUGS (2)
  1. TRILEPTAL [Suspect]
     Indication: EPILEPSY
     Dosage: 300 MG AM+ 600 MG PM
     Route: 048
     Dates: end: 20081101
  2. URBANYL [Concomitant]

REACTIONS (6)
  - BLOOD SODIUM DECREASED [None]
  - GASTROINTESTINAL NEOPLASM [None]
  - LUNG NEOPLASM MALIGNANT [None]
  - LUNG NEOPLASM SURGERY [None]
  - MUSCULAR WEAKNESS [None]
  - SURGERY [None]
